FAERS Safety Report 10264318 (Version 1)
Quarter: 2014Q2

REPORT INFORMATION
  Report Type: Spontaneous
  Country: US (occurrence: US)
  Receive Date: 20140627
  Receipt Date: 20140627
  Transmission Date: 20141212
  Serious: Yes (Other)
  Sender: FDA-Public Use
  Company Number: US-BAYER-2014-095910

PATIENT
  Sex: Female

DRUGS (15)
  1. NIFEDIPINE [Concomitant]
     Dosage: 1 DF DAILY
     Route: 048
  2. RITALIN [Concomitant]
     Dosage: 1 DF, TID
     Route: 048
  3. SYNTHROID [Concomitant]
     Dosage: 1 DF, DAILY
     Route: 048
  4. GABAPENTIN [Concomitant]
     Dosage: 1 DF, TID
     Route: 048
  5. TRAZODONE [Concomitant]
     Dosage: 1 DF, HS
     Route: 048
  6. BETASERON [Suspect]
     Dosage: UNK
     Dates: end: 201104
  7. ALCOHOL SWABS WITH BENZOCAINE [Suspect]
  8. ADDERALL [Concomitant]
     Dosage: 1 DF, BID
     Route: 048
  9. ZANAFLEX [Concomitant]
     Dosage: 2 DF, BID
     Route: 048
  10. OXYBUTYNIN [Concomitant]
     Dosage: 1 DF, BID
     Route: 048
  11. VENLAFAXINE [Concomitant]
     Dosage: 1 DF, BID
     Route: 048
  12. ZOLPIDEM [Concomitant]
     Dosage: 1 DF, QD
     Route: 048
  13. AMBIEN [Concomitant]
     Dosage: 1 DF, HS
     Route: 048
  14. EFFEXOR [Concomitant]
     Dosage: 1 DF, BID
     Route: 048
  15. METOPROLOL TARTRATE [Concomitant]
     Dosage: 1 DF, BID
     Route: 048

REACTIONS (3)
  - Skin necrosis [None]
  - Infection [None]
  - Product quality issue [None]
